FAERS Safety Report 19369869 (Version 1)
Quarter: 2021Q2

REPORT INFORMATION
  Report Type: Spontaneous
  Country: CZ (occurrence: CZ)
  Receive Date: 20210604
  Receipt Date: 20210604
  Transmission Date: 20210717
  Serious: Yes (Other)
  Sender: FDA-Public Use
  Company Number: CZ-AUROBINDO-AUR-APL-2021-022406

PATIENT
  Age: 45 Year
  Sex: Male

DRUGS (7)
  1. LEVETIRACETAM. [Suspect]
     Active Substance: LEVETIRACETAM
     Indication: SEIZURE
     Dosage: 500 MILLIGRAM, ONCE A DAY)
     Route: 065
  2. LEVETIRACETAM. [Suspect]
     Active Substance: LEVETIRACETAM
     Dosage: 1000 MILLIGRAM, ONCE A DAY (500 MILLIGRAM, 2X/DAY (BID) (GRADUALLY INCREASED))
     Route: 065
  3. CARBAMAZEPINE. [Concomitant]
     Active Substance: CARBAMAZEPINE
     Dosage: 900 MILLIGRAM, ONCE A DAY (450 MILLIGRAM, 2X/DAY (BID))
     Route: 065
  4. LEVETIRACETAM. [Suspect]
     Active Substance: LEVETIRACETAM
     Dosage: 500 MILLIGRAM, ONCE A DAY (250 MILLIGRAM, 2X/DAY (BID))
     Route: 065
     Dates: start: 201811, end: 20190102
  5. BRIVARACETAM [Suspect]
     Active Substance: BRIVARACETAM
     Indication: PRODUCT USED FOR UNKNOWN INDICATION
     Dosage: 50 MILLIGRAM, ONCE A DAY (25 MILLIGRAM, 2X/DAY (BID))
     Route: 065
     Dates: start: 20190102, end: 20190515
  6. CARBAMAZEPINE. [Concomitant]
     Active Substance: CARBAMAZEPINE
     Indication: PRODUCT USED FOR UNKNOWN INDICATION
     Dosage: 600 MILLIGRAM, ONCE A DAY (300 MILLIGRAM, 2X/DAY (BID))
     Route: 065
  7. BRIVARACETAM [Suspect]
     Active Substance: BRIVARACETAM
     Dosage: UNK (25?0?50 MG)
     Route: 065
     Dates: start: 20190515

REACTIONS (10)
  - Seizure [Recovered/Resolved]
  - Abdominal discomfort [Recovered/Resolved]
  - Death of relative [Recovered/Resolved]
  - Platelet count decreased [Recovered/Resolved]
  - Product use issue [Unknown]
  - White blood cell count decreased [Recovered/Resolved]
  - Partial seizures with secondary generalisation [Recovered/Resolved]
  - Mood swings [Recovered/Resolved]
  - Erectile dysfunction [Recovered/Resolved]
  - Altered state of consciousness [Recovered/Resolved]

NARRATIVE: CASE EVENT DATE: 20100118
